FAERS Safety Report 6402237-9 (Version None)
Quarter: 2009Q4

REPORT INFORMATION
  Report Type: 
  Country: None (occurrence: None)
  Receive Date: 20091014
  Receipt Date: 20091014
  Transmission Date: 20100525
  Serious: No
  Sender: FDA-Public Use
  Company Number: None

PATIENT
  Sex: Female
  Weight: 68.9467 kg

DRUGS (2)
  1. FLONASE [Suspect]
     Indication: SEASONAL ALLERGY
     Dosage: TWO SPRAYS QD NASAL
     Route: 045
  2. FLONASE [Suspect]

REACTIONS (2)
  - EYE SWELLING [None]
  - PALPITATIONS [None]
